FAERS Safety Report 6697522-X (Version None)
Quarter: 2010Q2

REPORT INFORMATION
  Report Type: 
  Country: None (occurrence: None)
  Receive Date: 20100422
  Receipt Date: 20100407
  Transmission Date: 20101027
  Serious: Yes (Other)
  Sender: FDA-Public Use
  Company Number: AUR-APL-2010-01127

PATIENT
  Age: 60 Year
  Sex: Female

DRUGS (13)
  1. CARVEDILOL [Suspect]
  2. METFORMIN [Suspect]
  3. METOPROLOL [Suspect]
  4. ISOSORBIDE [Suspect]
  5. LIPITOR [Suspect]
  6. GLIPIZIDE [Suspect]
  7. VITAMIN D [Suspect]
  8. ETODOLAC [Suspect]
  9. ACETAMINOPHEN AND HYDROCODONE BITARTRATE [Suspect]
  10. DIPHENHYDRAMINE [Suspect]
  11. PRILOSEC [Suspect]
  12. OTC POTASSIUM SUPPLEMENTS [Suspect]
  13. PLAVIX [Suspect]

REACTIONS (13)
  - ABDOMINAL PAIN UPPER [None]
  - CHEST PAIN [None]
  - CONDITION AGGRAVATED [None]
  - DIARRHOEA [None]
  - DIZZINESS [None]
  - DRUG INEFFECTIVE [None]
  - DYSPNOEA [None]
  - HAEMATOTOXICITY [None]
  - INSOMNIA [None]
  - NAUSEA [None]
  - PAIN IN EXTREMITY [None]
  - POST PROCEDURAL COMPLICATION [None]
  - PROCEDURAL PAIN [None]
